FAERS Safety Report 5603615-8 (Version None)
Quarter: 2008Q1

REPORT INFORMATION
  Report Type: 
  Country: None (occurrence: None)
  Receive Date: 20080122
  Receipt Date: 20080114
  Transmission Date: 20080703
  Serious: Yes (Death, Life-Threatening)
  Sender: FDA-Public Use
  Company Number: CLOF-1000045

PATIENT
  Age: 15 Year
  Sex: Male
  Weight: 75.5 kg

DRUGS (2)
  1. CLOLAR [Suspect]
     Indication: MYELOID LEUKAEMIA
     Dates: start: 20080103
  2. BUSULFAN (BUSULFAN) UNKNOWN [Suspect]
     Indication: MYELOID LEUKAEMIA
     Dates: start: 20080103

REACTIONS (2)
  - HYPERCOAGULATION [None]
  - PULMONARY EMBOLISM [None]
